FAERS Safety Report 19097642 (Version 1)
Quarter: 2021Q2

REPORT INFORMATION
  Report Type: Spontaneous
  Country: US (occurrence: US)
  Receive Date: 20210406
  Receipt Date: 20210406
  Transmission Date: 20210717
  Serious: Yes (Other)
  Sender: FDA-Public Use
  Company Number: US-MYLANLABS-2021M1020712

PATIENT
  Age: 71 Year
  Sex: Male

DRUGS (6)
  1. NIVOLUMAB [Suspect]
     Active Substance: NIVOLUMAB
     Indication: SMALL CELL LUNG CANCER METASTATIC
     Route: 065
  2. CARBOPLATIN. [Suspect]
     Active Substance: CARBOPLATIN
     Indication: SMALL CELL LUNG CANCER METASTATIC
     Route: 065
  3. ETOPOSIDE. [Suspect]
     Active Substance: ETOPOSIDE
     Indication: SMALL CELL LUNG CANCER METASTATIC
     Route: 065
  4. ATEZOLIZUMAB. [Suspect]
     Active Substance: ATEZOLIZUMAB
     Indication: SMALL CELL LUNG CANCER METASTATIC
     Route: 065
  5. IRINOTECAN [Suspect]
     Active Substance: IRINOTECAN
     Indication: SMALL CELL LUNG CANCER METASTATIC
     Route: 065
  6. IPILIMUMAB [Suspect]
     Active Substance: IPILIMUMAB
     Indication: SMALL CELL LUNG CANCER METASTATIC
     Route: 065

REACTIONS (1)
  - Drug ineffective [Unknown]
